FAERS Safety Report 24914977 (Version 1)
Quarter: 2025Q1

REPORT INFORMATION
  Report Type: Spontaneous
  Country: TR (occurrence: TR)
  Receive Date: 20250203
  Receipt Date: 20250203
  Transmission Date: 20250409
  Serious: Yes (Disabling)
  Sender: NOVO NORDISK
  Company Number: TR-NOVOPROD-1358978

PATIENT
  Age: 731 Month
  Sex: Male

DRUGS (5)
  1. ASPIRIN [Concomitant]
     Active Substance: ASPIRIN
  2. INSULIN ASPART\INSULIN DEGLUDEC [Suspect]
     Active Substance: INSULIN ASPART\INSULIN DEGLUDEC
     Indication: Diabetes mellitus
     Dates: start: 202412
  3. PLETAL [Concomitant]
     Active Substance: CILOSTAZOL
  4. RAMIPRIL [Concomitant]
     Active Substance: RAMIPRIL
     Indication: Hypertension
     Dosage: 2.5 MG, BID
  5. RYZODEG 70/30 [Suspect]
     Active Substance: INSULIN ASPART\INSULIN DEGLUDEC
     Indication: Diabetes mellitus
     Dates: start: 20231207

REACTIONS (1)
  - Leg amputation [Unknown]
